FAERS Safety Report 7114150-2 (Version None)
Quarter: 2010Q4

REPORT INFORMATION
  Report Type: 
  Country: None (occurrence: None)
  Receive Date: 20101119
  Receipt Date: 20101105
  Transmission Date: 20110411
  Serious: Yes (Other)
  Sender: FDA-Public Use
  Company Number: JP-BIOGENIDEC-2010BI039868

PATIENT
  Age: 43 Year
  Sex: Female

DRUGS (5)
  1. AVONEX [Suspect]
     Indication: RELAPSING-REMITTING MULTIPLE SCLEROSIS
     Route: 030
     Dates: start: 20100301, end: 20100413
  2. AVONEX [Suspect]
     Route: 030
     Dates: start: 20100518
  3. GASTER D [Concomitant]
     Dates: start: 20100301, end: 20100413
  4. INFREE S [Concomitant]
     Dates: start: 20100308, end: 20100314
  5. AFTACH [Concomitant]
     Dates: start: 20100308, end: 20100314

REACTIONS (3)
  - HEADACHE [None]
  - HEPATIC FUNCTION ABNORMAL [None]
  - PYREXIA [None]
